FAERS Safety Report 6764825-X (Version None)
Quarter: 2010Q2

REPORT INFORMATION
  Report Type: 
  Country: None (occurrence: None)
  Receive Date: 20100610
  Receipt Date: 20100607
  Transmission Date: 20101027
  Serious: Yes (Other)
  Sender: FDA-Public Use
  Company Number: US-JNJCH-2010013679

PATIENT
  Age: 23 Year
  Sex: Female
  Weight: 43.5 kg

DRUGS (2)
  1. DRAMAMINE [Suspect]
     Indication: DRUG USE FOR UNKNOWN INDICATION
     Dosage: TEXT:24 TABLETS ONCE
     Route: 048
     Dates: start: 20100605, end: 20100605
  2. DRUG, UNSPECIFIED [Concomitant]
     Indication: ANXIETY
     Dosage: TEXT:UNSPECIFIED
     Route: 065

REACTIONS (3)
  - DYSARTHRIA [None]
  - OVERDOSE [None]
  - VISION BLURRED [None]
